FAERS Safety Report 6456323-8 (Version None)
Quarter: 2009Q4

REPORT INFORMATION
  Report Type: 
  Country: None (occurrence: None)
  Receive Date: 20091125
  Receipt Date: 20091117
  Transmission Date: 20100525
  Serious: Yes (Other)
  Sender: FDA-Public Use
  Company Number: GB-ROCHE-669969

PATIENT
  Age: 78 Year
  Sex: Female

DRUGS (4)
  1. CAPECITABINE [Suspect]
     Indication: COLON CANCER METASTATIC
     Dosage: EVERY TWO WEEKS
     Route: 065
     Dates: start: 20090101
  2. CAPECITABINE [Suspect]
     Route: 065
  3. OXALIPLATIN [Suspect]
     Indication: COLORECTAL CANCER METASTATIC
     Route: 065
     Dates: start: 20090101
  4. OXALIPLATIN [Suspect]
     Route: 065

REACTIONS (1)
  - NEUROTOXICITY [None]
